FAERS Safety Report 4709362-9 (Version None)
Quarter: 2005Q3

REPORT INFORMATION
  Report Type: 
  Country: None (occurrence: None)
  Receive Date: 20050708
  Receipt Date: 20050419
  Transmission Date: 20060218
  Serious: Yes (Death, Life-Threatening, Hospitalization)
  Sender: FDA-Public Use
  Company Number: PHHO2005JP06404

PATIENT
  Age: 79 Year
  Sex: Male

DRUGS (3)
  1. DOMPERIDONE [Suspect]
     Indication: NAUSEA
     Dosage: UNK, UNK
     Route: 048
     Dates: start: 20021101, end: 20021105
  2. GRAMALIL [Suspect]
     Indication: RESTLESSNESS
     Dosage: UNK, UNK
     Route: 048
     Dates: start: 20021102, end: 20021105
  3. DIOVAN [Suspect]
     Indication: HYPERTENSION
     Dosage: 80 MG, QD
     Route: 048
     Dates: start: 20021101, end: 20021105

REACTIONS (10)
  - APNOEA [None]
  - BLOOD PRESSURE DECREASED [None]
  - DEPRESSED LEVEL OF CONSCIOUSNESS [None]
  - HEPATIC ENCEPHALOPATHY [None]
  - HEPATIC FAILURE [None]
  - NAUSEA [None]
  - PYREXIA [None]
  - RESTLESSNESS [None]
  - STRIDOR [None]
  - WHEEZING [None]
